FAERS Safety Report 7492138-X (Version None)
Quarter: 2011Q2

REPORT INFORMATION
  Report Type: 
  Country: None (occurrence: None)
  Receive Date: 20110511
  Receipt Date: 20110504
  Transmission Date: 20111010
  Serious: Yes (Hospitalization)
  Sender: FDA-Public Use
  Company Number: 2009SP028413

PATIENT
  Age: 23 Year
  Sex: Female
  Weight: 58.9676 kg

DRUGS (5)
  1. OXYCONTIN [Suspect]
     Indication: HEADACHE
  2. NUVARING [Suspect]
     Indication: CONTRACEPTION
     Dates: start: 20070101, end: 20070901
  3. DILAUDID [Suspect]
     Indication: HEADACHE
  4. MORPHINE [Suspect]
     Indication: HEADACHE
  5. OXYCODONE HCL [Suspect]
     Indication: HEADACHE

REACTIONS (9)
  - ANTIPHOSPHOLIPID ANTIBODIES POSITIVE [None]
  - CEREBRAL THROMBOSIS [None]
  - COAGULOPATHY [None]
  - ABORTION SPONTANEOUS [None]
  - CONSTIPATION [None]
  - CEREBROVASCULAR ACCIDENT [None]
  - SUBARACHNOID HAEMORRHAGE [None]
  - INTRACRANIAL VENOUS SINUS THROMBOSIS [None]
  - DRUG EXPOSURE DURING PREGNANCY [None]
